FAERS Safety Report 7484115-X (Version None)
Quarter: 2011Q2

REPORT INFORMATION
  Report Type: 
  Country: None (occurrence: None)
  Receive Date: 20110409
  Receipt Date: 20110428
  Transmission Date: 20111010
  Serious: Yes (Death)
  Sender: FDA-Public Use
  Company Number: GB-ACCORD-008916

PATIENT
  Age: 42 Year
  Sex: Male

DRUGS (7)
  1. ETOPOSIDE [Suspect]
     Indication: BURKITT'S LYMPHOMA
  2. CYTARABINE [Suspect]
     Indication: BURKITT'S LYMPHOMA
  3. METHOTREXATE [Suspect]
     Indication: BURKITT'S LYMPHOMA
  4. IFOSFAMIDE [Suspect]
     Indication: BURKITT'S LYMPHOMA
  5. CYCLOPHOSPHAMIDE [Suspect]
     Indication: BURKITT'S LYMPHOMA
  6. VINCRISTINE [Suspect]
     Indication: BURKITT'S LYMPHOMA
  7. OXORUBICIN (DOXORIBICIN) [Suspect]
     Indication: BURKITT'S LYMPHOMA
     Dosage: INTRAVENOUS (NOT OTHERWISE SPECIFIED)
     Route: 042

REACTIONS (2)
  - BURKITT'S LYMPHOMA RECURRENT [None]
  - OFF LABEL USE [None]
